FAERS Safety Report 10094228 (Version 1)
Quarter: 2014Q2

REPORT INFORMATION
  Report Type: Spontaneous
  Country: US (occurrence: None)
  Receive Date: 20140418
  Receipt Date: 20140418
  Transmission Date: 20141212
  Serious: Yes (Death)
  Sender: FDA-Public Use
  Company Number: 201404-US-000393

PATIENT
  Age: 4 Year
  Sex: Male

DRUGS (1)
  1. SODIUM PHOSPHATE, DIBASIC [Suspect]
     Indication: CONSTIPATION
     Dosage: TWO PEDIATRIC AND ONE ADULT ENEMA
     Route: 054

REACTIONS (2)
  - Cardio-respiratory arrest [None]
  - Intestinal perforation [None]
